FAERS Safety Report 4985768-8 (Version None)
Quarter: 2006Q2

REPORT INFORMATION
  Report Type: 
  Country: None (occurrence: None)
  Receive Date: 20060421
  Receipt Date: 20060414
  Transmission Date: 20061013
  Serious: Yes (Hospitalization)
  Sender: FDA-Public Use
  Company Number: HQ2081726APR2002

PATIENT
  Age: 65 Year
  Sex: Male

DRUGS (2)
  1. CORDARONE [Suspect]
     Indication: ATRIAL FIBRILLATION
     Dosage: 200 MG
     Route: 048
     Dates: start: 20000101, end: 20020327
  2. TAXOTERE [Suspect]
     Indication: METASTASES TO LUNG
     Route: 042
     Dates: start: 20020305, end: 20020305

REACTIONS (5)
  - ACUTE RESPIRATORY DISTRESS SYNDROME [None]
  - HYPERCAPNIC ENCEPHALOPATHY [None]
  - METASTASES TO LUNG [None]
  - PLEURISY [None]
  - PNEUMONITIS [None]
